FAERS Safety Report 15995812 (Version 3)
Quarter: 2019Q2

REPORT INFORMATION
  Report Type: Spontaneous
  Country: US (occurrence: US)
  Receive Date: 20190222
  Receipt Date: 20190509
  Transmission Date: 20190711
  Serious: No
  Sender: FDA-Public Use
  Company Number: US-ELI_LILLY_AND_COMPANY-US201901015847

PATIENT
  Sex: Female

DRUGS (2)
  1. EMGALITY [Suspect]
     Active Substance: GALCANEZUMAB-GNLM
     Indication: MIGRAINE
     Dosage: 120 MG, UNKNOWN
     Route: 058
     Dates: start: 20190104
  2. MOTRIN IB [Concomitant]
     Active Substance: IBUPROFEN
     Indication: PRODUCT USED FOR UNKNOWN INDICATION
     Dosage: UNK, UNKNOWN
     Route: 065

REACTIONS (10)
  - Injection site hypersensitivity [Recovered/Resolved]
  - Injection site infection [Recovering/Resolving]
  - Pyrexia [Recovering/Resolving]
  - Feeding disorder [Unknown]
  - Injection site induration [Recovered/Resolved]
  - Migraine [Recovered/Resolved]
  - Peripheral swelling [Recovering/Resolving]
  - Injection site hypersensitivity [Recovered/Resolved]
  - Abdominal discomfort [Unknown]
  - Aura [Unknown]

NARRATIVE: CASE EVENT DATE: 20190123
